FAERS Safety Report 25670210 (Version 2)
Quarter: 2025Q4

REPORT INFORMATION
  Report Type: Spontaneous
  Country: US (occurrence: US)
  Receive Date: 20250812
  Receipt Date: 20251111
  Transmission Date: 20260117
  Serious: Yes (Hospitalization, Other)
  Sender: NOVO NORDISK
  Company Number: US-NOVOPROD-1496235

PATIENT
  Age: 66 Year
  Sex: Female
  Weight: 97.506 kg

DRUGS (53)
  1. OZEMPIC [Suspect]
     Active Substance: SEMAGLUTIDE
     Indication: Type 2 diabetes mellitus
     Dosage: 0.5 MG, QW
     Dates: start: 20200317, end: 20200924
  2. OZEMPIC [Suspect]
     Active Substance: SEMAGLUTIDE
     Indication: Type 2 diabetes mellitus
     Dosage: 1 MG, QW
     Dates: start: 20200215, end: 20230907
  3. OZEMPIC [Suspect]
     Active Substance: SEMAGLUTIDE
     Indication: Type 2 diabetes mellitus
     Dosage: 2 MG, QW
     Dates: start: 2023, end: 20231230
  4. TRULICITY [Concomitant]
     Active Substance: DULAGLUTIDE
     Indication: Type 2 diabetes mellitus
     Dosage: 1.5 MG, QW
     Dates: start: 20181221, end: 2020
  5. OLMESARTAN MEDOXOMIL [Concomitant]
     Active Substance: OLMESARTAN MEDOXOMIL
     Indication: Hypertension
     Dosage: UNK
     Dates: start: 20170118
  6. DULOXETINE HYDROCHLORIDE [Concomitant]
     Active Substance: DULOXETINE HYDROCHLORIDE
     Indication: Pain
     Dosage: UNK
     Dates: start: 20170107, end: 20210409
  7. PROPAFENONE HCL [Concomitant]
     Active Substance: PROPAFENONE HYDROCHLORIDE
     Indication: Atrial fibrillation
     Dosage: UNK
     Dates: start: 20170127
  8. PREGABALIN [Concomitant]
     Active Substance: PREGABALIN
     Indication: Neuralgia
     Dosage: UNK
     Dates: start: 20190823, end: 20230922
  9. DILTIAZEM [Concomitant]
     Active Substance: DILTIAZEM
     Indication: Hypertension
     Dosage: UNK
     Dates: start: 20170202, end: 20200531
  10. ZOLPIDEM TARTRATE [Concomitant]
     Active Substance: ZOLPIDEM TARTRATE
     Indication: Sleep disorder
     Dosage: UNK
     Dates: start: 20170106, end: 20230724
  11. FLUCONAZOLE [Concomitant]
     Active Substance: FLUCONAZOLE
     Dosage: UNK
     Dates: start: 20170505, end: 20230517
  12. FLUCONAZOLE [Concomitant]
     Active Substance: FLUCONAZOLE
     Indication: Antifungal treatment
     Dosage: UNK
     Dates: start: 20170120
  13. TRIAMCINOLONE [Concomitant]
     Active Substance: TRIAMCINOLONE
     Indication: Steroid therapy
     Dosage: UNK
     Dates: start: 20170120, end: 20230207
  14. ATORVASTATIN [Concomitant]
     Active Substance: ATORVASTATIN
     Indication: Blood cholesterol abnormal
     Dosage: UNK
     Dates: start: 20170123, end: 20240722
  15. OXYCODONE [Concomitant]
     Active Substance: OXYCODONE
     Indication: Pain management
     Dosage: UNK
     Dates: start: 20170222, end: 20240728
  16. DICLOFENAC SODIUM [Concomitant]
     Active Substance: DICLOFENAC SODIUM
     Indication: Gastrointestinal disorder
     Dosage: UNK
     Dates: start: 20170524, end: 20240506
  17. DICLOFENAC SODIUM [Concomitant]
     Active Substance: DICLOFENAC SODIUM
     Dosage: UNK
     Dates: start: 20170228, end: 20231216
  18. AZELASTINE [Concomitant]
     Active Substance: AZELASTINE
     Indication: Antiallergic therapy
     Dosage: UNK
     Dates: end: 20210713
  19. NYSTATIN [Concomitant]
     Active Substance: NYSTATIN
     Indication: Antifungal treatment
     Dosage: UNK
     Dates: start: 20230207, end: 20230614
  20. HYDROXYZINE [Concomitant]
     Active Substance: HYDROXYZINE HYDROCHLORIDE
     Indication: Antiallergic therapy
     Dosage: UNK
     Dates: start: 20180404, end: 20240319
  21. METRONIDAZOLE [Concomitant]
     Active Substance: METRONIDAZOLE
     Indication: Infection prophylaxis
     Dosage: UNK
     Dates: start: 20190219, end: 20230727
  22. CYCLOBENZAPRINE [Concomitant]
     Active Substance: CYCLOBENZAPRINE
     Indication: Pain
     Dosage: UNK
     Dates: start: 20190428, end: 20220515
  23. MONTELUKAST [Concomitant]
     Active Substance: MONTELUKAST
     Indication: Hypersensitivity
     Dosage: UNK
     Dates: start: 20170608
  24. PROAIR HFA [Concomitant]
     Active Substance: ALBUTEROL SULFATE
     Indication: Asthma
     Dosage: UNK
     Dates: start: 20171227, end: 20200713
  25. SYMBICORT [Concomitant]
     Active Substance: BUDESONIDE\FORMOTEROL FUMARATE DIHYDRATE
     Indication: Asthma
     Dosage: UNK
     Dates: start: 20181017
  26. TOPIRAMATE [Concomitant]
     Active Substance: TOPIRAMATE
     Indication: Ill-defined disorder
     Dosage: UNK
     Dates: start: 20180404, end: 20210918
  27. DOXEPIN [Concomitant]
     Active Substance: DOXEPIN
     Indication: Antidepressant therapy
     Dosage: UNK
     Dates: start: 20210818, end: 20220921
  28. METHYLPREDNISOLONE [Concomitant]
     Active Substance: METHYLPREDNISOLONE
     Indication: Steroid therapy
     Dosage: UNK
     Dates: start: 20180307, end: 20200427
  29. HYDROXYZINE HYDROCHLORIDE [Concomitant]
     Active Substance: HYDROXYZINE HYDROCHLORIDE
     Indication: Antiallergic therapy
     Dosage: UNK
     Dates: start: 20180404, end: 20231223
  30. FLUTICASONE [Concomitant]
     Active Substance: FLUTICASONE
     Indication: Steroid therapy
     Dosage: UNK
     Dates: start: 20181116, end: 20240718
  31. NALOXONE HCL [Concomitant]
     Active Substance: NALOXONE HYDROCHLORIDE
     Indication: Emergency care
     Dosage: UNK
     Dates: start: 20230630, end: 20240309
  32. HYDROCORTISONE [Concomitant]
     Active Substance: HYDROCORTISONE
     Indication: Steroid therapy
     Dosage: UNK
     Dates: start: 20191113, end: 20200128
  33. TIADYLT ER [Concomitant]
     Active Substance: DILTIAZEM HYDROCHLORIDE
     Indication: Hypertension
     Dosage: UNK
     Dates: start: 20200628, end: 20210103
  34. CELECOXIB [Concomitant]
     Active Substance: CELECOXIB
     Indication: Antiinflammatory therapy
     Dosage: UNK
     Dates: start: 20201027, end: 20220625
  35. MELOXICAM [Concomitant]
     Active Substance: MELOXICAM
     Indication: Antiinflammatory therapy
     Dosage: UNK
     Dates: start: 20210209, end: 20221014
  36. TAMSULOSIN [Concomitant]
     Active Substance: TAMSULOSIN
     Indication: Alpha interferon therapy
     Dosage: UNK
     Dates: start: 20200716, end: 20240523
  37. MODERNA COVID-19 VACCINE [Concomitant]
     Active Substance: ELASOMERAN
     Indication: COVID-19
     Dosage: UNK
     Dates: start: 20220114, end: 20220114
  38. EZETIMIBE [Concomitant]
     Active Substance: EZETIMIBE
     Indication: Blood cholesterol increased
     Dosage: UNK
     Dates: start: 20220315, end: 20240722
  39. PREMARIN [Concomitant]
     Active Substance: ESTROGENS, CONJUGATED
     Indication: Vaginal disorder
     Dosage: UNK
     Dates: start: 20200804, end: 20221217
  40. MECLIZINE [Concomitant]
     Active Substance: MECLIZINE HYDROCHLORIDE
     Indication: Antiallergic therapy
     Dosage: UNK
     Dates: start: 20220809
  41. FAMOTIDINE [Concomitant]
     Active Substance: FAMOTIDINE
     Indication: Gastrointestinal disorder
     Dosage: UNK
     Dates: start: 20210319, end: 20220925
  42. BREZTRI [Concomitant]
     Active Substance: BUDESONIDE\FORMOTEROL\GLYCOPYRROLATE
     Indication: Lung disorder
     Dosage: UNK
     Dates: start: 20221007, end: 20221007
  43. FLUCONAZOLE [Concomitant]
     Active Substance: FLUCONAZOLE
     Indication: Influenza
     Dosage: UNK
     Dates: start: 20181102, end: 20231010
  44. CLONIDINE [Concomitant]
     Active Substance: CLONIDINE
     Indication: Pain
     Dosage: UNK
     Dates: start: 20221206, end: 2023
  45. CLONIDINE [Concomitant]
     Active Substance: CLONIDINE
     Indication: Blood pressure abnormal
  46. PREDNISOLONE [Concomitant]
     Active Substance: PREDNISOLONE
     Indication: Eye disorder
     Dosage: UNK
     Dates: start: 20231114, end: 20231114
  47. PREDNISOLONE [Concomitant]
     Active Substance: PREDNISOLONE
     Indication: Steroid therapy
  48. CALCIUM 600 MG WITH VITAMIN D [Concomitant]
     Indication: Vitamin supplementation
     Dosage: UNK
     Dates: start: 20220215, end: 20231130
  49. ESOMEPRAZOLE [Concomitant]
     Active Substance: ESOMEPRAZOLE
     Indication: Drug therapy
     Dosage: UNK
     Dates: end: 20231111
  50. ELIQUIS [Concomitant]
     Active Substance: APIXABAN
     Indication: Type 2 diabetes mellitus
  51. ELIQUIS [Concomitant]
     Active Substance: APIXABAN
     Indication: Anticoagulant therapy
     Dosage: UNK
     Dates: start: 20170212
  52. AMLODIPINE BESYLATE [Concomitant]
     Active Substance: AMLODIPINE BESYLATE
     Indication: Hypertension
     Dosage: UNK
     Dates: start: 20220716, end: 20231227
  53. DICYCLOMINE [Concomitant]
     Active Substance: DICYCLOMINE HYDROCHLORIDE
     Indication: Gastrointestinal disorder
     Dosage: UNK
     Dates: start: 20170524, end: 20240506

REACTIONS (5)
  - Gallbladder injury [Recovered/Resolved]
  - Cholecystitis [Recovered/Resolved]
  - Intestinal obstruction [Recovered/Resolved]
  - Dyspepsia [Recovered/Resolved]
  - Off label use [Unknown]

NARRATIVE: CASE EVENT DATE: 20200301
